FAERS Safety Report 22039894 (Version 1)
Quarter: 2023Q1

REPORT INFORMATION
  Report Type: Spontaneous
  Country: GB (occurrence: GB)
  Receive Date: 20230227
  Receipt Date: 20230227
  Transmission Date: 20230418
  Serious: Yes (Hospitalization, Other)
  Sender: FDA-Public Use
  Company Number: None

PATIENT
  Age: 84 Year
  Sex: Male

DRUGS (11)
  1. DALTEPARIN SODIUM [Suspect]
     Active Substance: DALTEPARIN SODIUM
     Dates: start: 20230220
  2. ATORVASTATIN [Concomitant]
     Active Substance: ATORVASTATIN
     Dosage: 10 MG, ONE TO BE TAKEN THREE DAYS A WEEK 28 TABLET - TAKES MONDAYS, WEDNESDAYS AND FRIDAYS.
  3. BUMETANIDE [Concomitant]
     Active Substance: BUMETANIDE
     Dosage: 1 MG, HALF OF ONE TO BE TAKEN EACH MORNING
  4. DEXAMETHASONE [Concomitant]
     Active Substance: DEXAMETHASONE
     Dosage: 500 UG, ONE TO BE TAKEN EACH DAY
  5. LINAGLIPTIN [Concomitant]
     Active Substance: LINAGLIPTIN
     Dosage: 5 MG, 1X/DAY
  6. OXYCODONE [Concomitant]
     Active Substance: OXYCODONE
  7. PROCHLORPERAZINE [Concomitant]
     Active Substance: PROCHLORPERAZINE
     Indication: Illness
     Dosage: 3 MG (1 OR 2 TABLETS TWICE DAILY)
  8. DIORALYTE [GLUCOSE;POTASSIUM CHLORIDE;SODIUM CHLORIDE;SODIUM CITRATE A [Concomitant]
     Dosage: 2 DF (DISSOLVE ONE SACHET IN 200ML OF WATER AND TAKE AS OFTEN AS DIRECTED 20 SACHET - PT CONFIRMS HA
  9. COCODAMOL [Concomitant]
     Active Substance: ACETAMINOPHEN\CODEINE PHOSPHATE
     Indication: Pain
     Dosage: 8MG/500MG TABLETS 1-2 QDS PRN 100 TABLET - TAKING PRN PAIN. - ON PRN OXYCODONE AND PARECTAMOL GIVEN
  10. INSULIN GLARGINE [Concomitant]
     Active Substance: INSULIN GLARGINE
     Dosage: 12 DF, DAILY (100UNITS/ML SOLUTION FOR INJECTION 3ML PRE-FILLED PENS FOR SUBCUTANEOUS INJECTION, ACC
     Route: 058
  11. TRIPTORELIN [Concomitant]
     Active Substance: TRIPTORELIN
     Dosage: USE AS DIRECTED EVERY 3 MONTHS. PT INFORMS ME THAT THIS WAS DUE LAST WEEK, HOWEVER, THAT IT HAD TO B

REACTIONS (1)
  - Haematuria [Recovered/Resolved]
